FAERS Safety Report 8607415-6 (Version None)
Quarter: 2012Q3

REPORT INFORMATION
  Report Type: 
  Country: None (occurrence: None)
  Receive Date: 20120821
  Receipt Date: 20120816
  Transmission Date: 20120928
  Serious: Yes (Death, Life-Threatening, Hospitalization)
  Sender: FDA-Public Use
  Company Number: CA-GENZYME-THYM-1003382

PATIENT
  Sex: Male
  Weight: 110 kg

DRUGS (14)
  1. FLUCONAZOLE [Concomitant]
     Indication: PRODUCT USED FOR UNKNOWN INDICATION
     Dosage: 400 MG, QD
     Route: 065
  2. FOLIC ACID [Concomitant]
     Indication: PRODUCT USED FOR UNKNOWN INDICATION
     Dosage: 1 MG, QD
     Route: 048
  3. ACYCLOVIR [Concomitant]
     Indication: PRODUCT USED FOR UNKNOWN INDICATION
     Dosage: 400 MG, BID
     Route: 065
  4. LASIX [Concomitant]
     Indication: PRODUCT USED FOR UNKNOWN INDICATION
     Dosage: 20 MG, BID, PRN
     Route: 065
  5. NPH INSULIN [Concomitant]
     Indication: PRODUCT USED FOR UNKNOWN INDICATION
     Dosage: IN EVENING
     Route: 065
  6. CYCLOSPORINE [Concomitant]
     Indication: PRODUCT USED FOR UNKNOWN INDICATION
     Dosage: 175 MG, BID
     Route: 042
  7. FENTANYL CITRATE [Concomitant]
     Indication: PRODUCT USED FOR UNKNOWN INDICATION
     Dosage: UNK
     Route: 065
  8. HUMULIN N [Concomitant]
     Indication: PRODUCT USED FOR UNKNOWN INDICATION
     Dosage: IN MORNING
     Route: 065
  9. THYMOGLOBULIN [Suspect]
     Indication: PROPHYLAXIS AGAINST GRAFT VERSUS HOST DISEASE
     Dosage: 0.5 MG/KG, ONCE
     Route: 042
     Dates: start: 20110824, end: 20110824
  10. URSODIOL [Concomitant]
     Indication: PRODUCT USED FOR UNKNOWN INDICATION
     Dosage: 750 MG, BID
     Route: 048
  11. THYMOGLOBULIN [Suspect]
     Dosage: 2 MG/KG, ONCE
     Route: 042
     Dates: start: 20110827, end: 20110827
  12. THYMOGLOBULIN [Suspect]
     Indication: IMMUNOSUPPRESSION
     Dosage: 2 MG/KG, ONCE
     Route: 042
     Dates: start: 20110825, end: 20110825
  13. MIDAZOLAM [Concomitant]
     Indication: PRODUCT USED FOR UNKNOWN INDICATION
     Dosage: UNK
     Route: 065
  14. INSULIN TORONTO [Concomitant]
     Indication: PRODUCT USED FOR UNKNOWN INDICATION
     Dosage: UNK, SLIDING SCALE
     Route: 065

REACTIONS (11)
  - BLOOD CREATININE INCREASED [None]
  - PYREXIA [None]
  - CARDIAC ARREST [None]
  - PLEURAL EFFUSION [None]
  - VENOOCCLUSIVE LIVER DISEASE [None]
  - BLOOD BILIRUBIN INCREASED [None]
  - SEPSIS [None]
  - DYSPNOEA [None]
  - ATELECTASIS [None]
  - WHITE BLOOD CELL COUNT DECREASED [None]
  - TRANSPLANT FAILURE [None]
